FAERS Safety Report 9708815 (Version 1)
Quarter: 2013Q4

REPORT INFORMATION
  Report Type: Spontaneous
  Country: US (occurrence: US)
  Receive Date: 20131125
  Receipt Date: 20131125
  Transmission Date: 20140711
  Serious: Yes (Other)
  Sender: FDA-Public Use
  Company Number: CHPA2013US017374

PATIENT
  Age: 55 Year
  Sex: Female

DRUGS (4)
  1. PRIVATE LABEL [Suspect]
     Indication: SMOKING CESSATION THERAPY
     Dosage: 7 MG, QD
     Route: 062
     Dates: start: 20131116
  2. PRIVATE LABEL [Suspect]
     Dosage: 7 MG, QD
     Route: 062
     Dates: start: 2012, end: 2012
  3. PRIVATE LABEL [Suspect]
     Dosage: 14 MG, QD
     Route: 062
     Dates: start: 2012, end: 2012
  4. PRIVATE LABEL [Suspect]
     Dosage: 21 MG, QD
     Dates: start: 2012

REACTIONS (6)
  - Upper respiratory tract infection [Not Recovered/Not Resolved]
  - Dyspnoea [Not Recovered/Not Resolved]
  - Back disorder [Recovered/Resolved]
  - Increased appetite [Not Recovered/Not Resolved]
  - Chest pain [Not Recovered/Not Resolved]
  - Expired drug administered [Unknown]
